FAERS Safety Report 9790764 (Version 4)
Quarter: 2014Q3

REPORT INFORMATION
  Report Type: Report from Study
  Country: AU (occurrence: AU)
  Receive Date: 20131231
  Receipt Date: 20140828
  Transmission Date: 20150326
  Serious: Yes (Other)
  Sender: FDA-Public Use
  Company Number: PHHY2013AU149687

PATIENT
  Age: 44 Year
  Sex: Male

DRUGS (2)
  1. STI571 [Suspect]
     Active Substance: IMATINIB MESYLATE
     Indication: OFF LABEL USE
     Dosage: 400 MG, DAILY
     Route: 048
     Dates: start: 20120411
  2. STI571 [Suspect]
     Active Substance: IMATINIB MESYLATE
     Indication: SYNOVITIS
     Dosage: 400 MG, DAILY
     Route: 048

REACTIONS (6)
  - Disease progression [Unknown]
  - Joint effusion [Unknown]
  - Arthralgia [Unknown]
  - Vitiligo [Not Recovered/Not Resolved]
  - Bone erosion [Unknown]
  - Synovitis [Unknown]

NARRATIVE: CASE EVENT DATE: 20120718
